FAERS Safety Report 22308779 (Version 1)
Quarter: 2023Q2

REPORT INFORMATION
  Report Type: Spontaneous
  Country: FR (occurrence: None)
  Receive Date: 20230511
  Receipt Date: 20230511
  Transmission Date: 20230721
  Serious: Yes (Other)
  Sender: FDA-Public Use
  Company Number: 2023A102572

PATIENT
  Age: 8 Year
  Sex: Female

DRUGS (1)
  1. SELUMETINIB [Suspect]
     Active Substance: SELUMETINIB
     Indication: Neurofibromatosis
     Dosage: 25MG 2 TIMES PER DAY
     Route: 048
     Dates: start: 20210210

REACTIONS (2)
  - Malignant transformation [Not Recovered/Not Resolved]
  - Neurofibrosarcoma [Not Recovered/Not Resolved]

NARRATIVE: CASE EVENT DATE: 20230210
